FAERS Safety Report 17185458 (Version 1)
Quarter: 2019Q4

REPORT INFORMATION
  Report Type: Spontaneous
  Country: US (occurrence: US)
  Receive Date: 20191220
  Receipt Date: 20191220
  Transmission Date: 20200122
  Serious: No
  Sender: FDA-Public Use
  Company Number: US-MALLINCKRODT-T201902789

PATIENT
  Age: 75 Year
  Sex: Male
  Weight: 105 kg

DRUGS (2)
  1. FENTANYL TRANSDERMAL SYSTEM [Suspect]
     Active Substance: FENTANYL
     Indication: PAIN
     Dosage: 50 UG/HR, EVERY 72 HRS
     Route: 062
     Dates: start: 20190301, end: 201903
  2. FENTANYL TRANSDERMAL SYSTEM [Suspect]
     Active Substance: FENTANYL
     Dosage: 50 UG/HR, EVERY 48 HRS (2 DAYS)
     Route: 062
     Dates: start: 201903

REACTIONS (3)
  - Feeling abnormal [Unknown]
  - Withdrawal syndrome [Unknown]
  - Dyspnoea [Unknown]

NARRATIVE: CASE EVENT DATE: 201903
